FAERS Safety Report 5084744-7 (Version None)
Quarter: 2006Q3

REPORT INFORMATION
  Report Type: 
  Country: None (occurrence: None)
  Receive Date: 20060815
  Receipt Date: 20060808
  Transmission Date: 20061208
  Serious: Yes (Death)
  Sender: FDA-Public Use
  Company Number: 083-20785-0608245

PATIENT
  Sex: 0

DRUGS (3)
  1. THALOMID [Suspect]
     Indication: MULTIPLE MYELOMA
     Dosage: ORAL
     Route: 048
  2. MELPHALAN (MELPHALAN) [Suspect]
     Indication: MULTIPLE MYELOMA
  3. PREDNISONE TAB [Suspect]
     Indication: MULTIPLE MYELOMA

REACTIONS (4)
  - CARDIAC DISORDER [None]
  - EMBOLISM [None]
  - INFECTION [None]
  - PNEUMONIA [None]
